FAERS Safety Report 5547822-1 (Version None)
Quarter: 2007Q4

REPORT INFORMATION
  Report Type: 
  Country: None (occurrence: None)
  Receive Date: 20071211
  Receipt Date: 20070305
  Transmission Date: 20080405
  Serious: No
  Sender: FDA-Public Use
  Company Number: US-AMGEN-KDL213651

PATIENT
  Sex: Female

DRUGS (2)
  1. ENBREL [Suspect]
     Indication: ANKYLOSING SPONDYLITIS
     Route: 058
     Dates: start: 20060301
  2. SULFASALAZINE [Concomitant]
     Dates: start: 19970101

REACTIONS (3)
  - ANKLE FRACTURE [None]
  - INJECTION SITE REACTION [None]
  - OEDEMA PERIPHERAL [None]
